FAERS Safety Report 6616419-4 (Version None)
Quarter: 2010Q1

REPORT INFORMATION
  Report Type: 
  Country: None (occurrence: None)
  Receive Date: 20100305
  Receipt Date: 20100222
  Transmission Date: 20100710
  Serious: Yes (Hospitalization, Other)
  Sender: FDA-Public Use
  Company Number: PHEH2008US07502

PATIENT
  Sex: Male

DRUGS (30)
  1. ZOMETA [Suspect]
     Dosage: UNK
  2. OXYCONTIN [Concomitant]
  3. CHEMOTHERAPEUTICS NOS [Concomitant]
  4. XANAX [Concomitant]
  5. AVINZA [Concomitant]
  6. HYDROCODONE [Concomitant]
  7. TIZANIDINE HCL [Concomitant]
  8. FENTANYL [Concomitant]
  9. VERSED [Concomitant]
  10. TARCEVA [Concomitant]
  11. ACTIQ [Concomitant]
  12. FOLIC ACID [Concomitant]
  13. ATIVAN [Concomitant]
  14. SENNA [Concomitant]
  15. ZOLPIDEM [Concomitant]
  16. MIRALAX [Concomitant]
  17. LORAZEPAM [Concomitant]
  18. PANTOPRAZOLE [Concomitant]
  19. SODIUM CHLORIDE [Concomitant]
  20. COMPAZINE [Concomitant]
  21. ACETAMINOPHEN [Concomitant]
  22. NITROSTAT [Concomitant]
  23. MORPHINE [Concomitant]
  24. CYMBALTA [Concomitant]
  25. NARCAN [Concomitant]
  26. ALTACE [Concomitant]
  27. DILAUDID [Concomitant]
  28. LEVAQUIN [Concomitant]
  29. CIPROFLOXACIN [Concomitant]
  30. RAMIPRIL [Concomitant]

REACTIONS (21)
  - ANAEMIA [None]
  - ANHEDONIA [None]
  - ANXIETY [None]
  - BONE DISORDER [None]
  - COLON CANCER METASTATIC [None]
  - COMPRESSION FRACTURE [None]
  - CONSTIPATION [None]
  - DISABILITY [None]
  - EMPHYSEMA [None]
  - HAEMATURIA [None]
  - HIP ARTHROPLASTY [None]
  - HYPERTENSION [None]
  - INJURY [None]
  - LOOSE TOOTH [None]
  - LYMPHADENOPATHY [None]
  - NEUTROPENIA [None]
  - OSTEONECROSIS [None]
  - PAIN [None]
  - PAIN IN EXTREMITY [None]
  - PSEUDOMONAS INFECTION [None]
  - PYREXIA [None]
